FAERS Safety Report 23590553 (Version 3)
Quarter: 2024Q2

REPORT INFORMATION
  Report Type: Report from Study
  Country: BR (occurrence: BR)
  Receive Date: 20240304
  Receipt Date: 20240620
  Transmission Date: 20240716
  Serious: Yes (Death, Hospitalization, Other)
  Sender: FDA-Public Use
  Company Number: BR-SERVIER-S24001718

PATIENT

DRUGS (1)
  1. PEGASPARGASE [Suspect]
     Active Substance: PEGASPARGASE
     Indication: Acute lymphocytic leukaemia
     Dosage: 1000 IU/M2
     Route: 065
     Dates: start: 20240115, end: 20240229

REACTIONS (5)
  - Hyperglycaemia [Recovered/Resolved]
  - Hypertriglyceridaemia [Recovering/Resolving]
  - Hypoglycaemia [Recovered/Resolved]
  - Infection [Recovered/Resolved]
  - Death [Fatal]

NARRATIVE: CASE EVENT DATE: 20240119
